FAERS Safety Report 25394435 (Version 1)
Quarter: 2025Q2

REPORT INFORMATION
  Report Type: Spontaneous
  Country: CN (occurrence: CN)
  Receive Date: 20250604
  Receipt Date: 20250604
  Transmission Date: 20250717
  Serious: Yes (Hospitalization, Other)
  Sender: BAXTER
  Company Number: None

PATIENT
  Age: 58 Year
  Sex: Female
  Weight: 65 kg

DRUGS (7)
  1. CYCLOPHOSPHAMIDE [Suspect]
     Active Substance: CYCLOPHOSPHAMIDE
     Indication: Neoplasm malignant
     Dosage: 2 G, QD
     Route: 041
     Dates: start: 20250426, end: 20250426
  2. SODIUM CHLORIDE [Suspect]
     Active Substance: SODIUM CHLORIDE
     Dosage: 0.9% SODIUM CHLORIDE INJECTION 250ML + EPIRUBICIN HYDROCHLORIDE 140MG
     Route: 041
     Dates: start: 20250426, end: 20250426
  3. SODIUM CHLORIDE [Suspect]
     Active Substance: SODIUM CHLORIDE
     Dosage: 0.9% SODIUM CHLORIDE INJECTION 100ML+ VINCRISTINE 2MG
     Route: 041
     Dates: start: 20250426, end: 20250426
  4. SODIUM CHLORIDE [Suspect]
     Active Substance: SODIUM CHLORIDE
     Dosage: 0.9% SODIUM CHLORIDE INJECTION 500ML+ CYCLOPHOSPHAMIDE 2G
     Route: 041
     Dates: start: 20250426, end: 20250426
  5. EPIRUBICIN HYDROCHLORIDE [Suspect]
     Active Substance: EPIRUBICIN HYDROCHLORIDE
     Indication: Neoplasm malignant
     Dosage: 140 MG, QD
     Route: 041
     Dates: start: 20250426, end: 20250426
  6. VINCRISTINE SULFATE [Suspect]
     Active Substance: VINCRISTINE SULFATE
     Indication: Neoplasm malignant
     Dosage: 2 MG, QD
     Route: 041
     Dates: start: 20250426, end: 20250426
  7. CEFAZOLIN [Concomitant]
     Active Substance: CEFAZOLIN
     Indication: Infection prophylaxis
     Route: 065
     Dates: start: 202505

REACTIONS (1)
  - Myelosuppression [Recovered/Resolved]

NARRATIVE: CASE EVENT DATE: 20250502
